FAERS Safety Report 8898211 (Version 1)
Quarter: 2012Q4

REPORT INFORMATION
  Report Type: 
  Country: US (occurrence: US)
  Receive Date: 20121108
  Receipt Date: 20121108
  Transmission Date: 20130627
  Serious: No
  Sender: FDA-Public Use
  Company Number: US-AMGEN-USASP2012034342

PATIENT
  Age: 63 Year
  Sex: Female
  Weight: 74.83 kg

DRUGS (8)
  1. ENBREL [Suspect]
     Indication: PSORIASIS
     Dosage: 50 mg, qwk
     Route: 058
  2. DIOVAN [Concomitant]
     Dosage: 40 mg, UNK
  3. METFORMIN [Concomitant]
     Dosage: 500 mg, UNK
  4. VICTOZA [Concomitant]
     Dosage: 18 mg, UNK
  5. VITAMIN D /00107901/ [Concomitant]
     Dosage: UNK
  6. COQ10                              /00517201/ [Concomitant]
     Dosage: 100 mg, UNK
  7. OMEGA 3                            /01334101/ [Concomitant]
     Dosage: 1000 mg, UNK
  8. CHROMIUM [Concomitant]
     Dosage: UNK

REACTIONS (2)
  - Therapeutic response decreased [Unknown]
  - Psoriasis [Unknown]
